APPROVED DRUG PRODUCT: PROZAC
Active Ingredient: FLUOXETINE HYDROCHLORIDE
Strength: EQ 10MG BASE **Federal Register determination that product was not discontinued or withdrawn for safety or effectiveness reasons**
Dosage Form/Route: TABLET;ORAL
Application: N020974 | Product #001
Applicant: ELI LILLY AND CO
Approved: Mar 9, 1999 | RLD: Yes | RS: No | Type: DISCN